FAERS Safety Report 24248740 (Version 1)
Quarter: 2024Q3

REPORT INFORMATION
  Report Type: Other
  Country: CA (occurrence: CA)
  Receive Date: 20240826
  Receipt Date: 20240826
  Transmission Date: 20241017
  Serious: Yes (Other)
  Sender: LUPIN
  Company Number: CA-LUPIN PHARMACEUTICALS INC.-2024-08382

PATIENT
  Age: 111 Month
  Sex: Male

DRUGS (1)
  1. CEPHALEXIN [Suspect]
     Active Substance: CEPHALEXIN
     Indication: Product used for unknown indication
     Dosage: UNK
     Route: 048

REACTIONS (10)
  - Abdominal pain [Unknown]
  - Anaphylactic reaction [Unknown]
  - Conjunctivitis [Unknown]
  - Cough [Unknown]
  - Drug hypersensitivity [Unknown]
  - Dyspnoea [Unknown]
  - Gastrointestinal disorder [Unknown]
  - Nasal congestion [Unknown]
  - Throat tightness [Unknown]
  - Urticaria [Unknown]
